FAERS Safety Report 26074856 (Version 1)
Quarter: 2025Q4

REPORT INFORMATION
  Report Type: Spontaneous
  Country: GB (occurrence: GB)
  Receive Date: 20251121
  Receipt Date: 20251121
  Transmission Date: 20260117
  Serious: Yes (Other)
  Sender: SANOFI AVENTIS
  Company Number: None

PATIENT
  Age: 60 Year
  Sex: Male
  Weight: 82 kg

DRUGS (6)
  1. TAMSULOSIN HYDROCHLORIDE [Suspect]
     Active Substance: TAMSULOSIN HYDROCHLORIDE
     Indication: Prostatic disorder
     Dosage: 0.4 MG, QD (1 TABLET PER DAY WITH BREAKFAST)
     Route: 065
     Dates: start: 20250906, end: 20251113
  2. ATORVASTATIN [Concomitant]
     Active Substance: ATORVASTATIN
     Indication: Magnetic resonance imaging heart
     Dosage: UNK
     Route: 065
  3. METFORMIN [Concomitant]
     Active Substance: METFORMIN HYDROCHLORIDE
     Indication: Type 2 diabetes mellitus
     Dosage: UNK
     Route: 065
  4. LISINOPRIL [Concomitant]
     Active Substance: LISINOPRIL
     Indication: Diabetes mellitus
     Dosage: UNK
     Route: 065
  5. BISOPROLOL [Concomitant]
     Active Substance: BISOPROLOL
     Indication: Magnetic resonance imaging heart
     Dosage: UNK
     Route: 065
  6. ASPIRIN [Concomitant]
     Active Substance: ASPIRIN
     Indication: Product used for unknown indication
     Dosage: UNK
     Route: 065

REACTIONS (2)
  - Muscle fatigue [Recovered/Resolved]
  - Exercise tolerance decreased [Unknown]

NARRATIVE: CASE EVENT DATE: 20251001
